FAERS Safety Report 9928401 (Version 1)
Quarter: 2014Q1

REPORT INFORMATION
  Report Type: Spontaneous
  Country: US (occurrence: None)
  Receive Date: 20140226
  Receipt Date: 20140226
  Transmission Date: 20141002
  Serious: Yes (Hospitalization, Disabling)
  Sender: FDA-Public Use
  Company Number: None

PATIENT
  Age: 68 Year
  Sex: Male
  Weight: 102.06 kg

DRUGS (2)
  1. TRAZODONE [Suspect]
     Indication: INSOMNIA
     Dosage: MORE THAN 1 YEAR 2 PILLS AS NEEDED PRN AS NEEDED ORAL
     Route: 048
  2. TRAZODONE [Suspect]
     Indication: ANXIETY
     Dosage: MORE THAN 1 YEAR 2 PILLS AS NEEDED PRN AS NEEDED ORAL
     Route: 048

REACTIONS (9)
  - Myalgia [None]
  - Disorientation [None]
  - Hallucination [None]
  - Fall [None]
  - Muscle spasms [None]
  - Hand fracture [None]
  - Contusion [None]
  - Cerebrovascular accident [None]
  - Laceration [None]
